FAERS Safety Report 10625738 (Version 1)
Quarter: 2014Q4

REPORT INFORMATION
  Report Type: Spontaneous
  Country: US (occurrence: None)
  Receive Date: 20141121
  Receipt Date: 20141121
  Transmission Date: 20150529
  Serious: No
  Sender: FDA-Public Use
  Company Number: 163-10004-14080902

PATIENT
  Age: 53 Year
  Sex: Female

DRUGS (5)
  1. OTEZLA [Suspect]
     Active Substance: APREMILAST
     Indication: PSORIATIC ARTHROPATHY
     Dosage: LOADING DOSE,   2 IN 1 D, PO
     Route: 048
     Dates: start: 201407
  2. HCTZ (HYDROCHLOROTHIAZIDE) (UNKNOWN) [Concomitant]
  3. ATORVASTATIN (ATORVASTATIN) (UNKNOWN) [Concomitant]
  4. CITALOPRAM (CITALOPRAM) (UNKNOWN) [Concomitant]
  5. MELOXICAM (MELOXICAM) (UNKNOWN) [Concomitant]

REACTIONS (2)
  - Headache [None]
  - Nausea [None]

NARRATIVE: CASE EVENT DATE: 20140720
